FAERS Safety Report 24258153 (Version 1)
Quarter: 2024Q3

REPORT INFORMATION
  Report Type: Spontaneous
  Country: US (occurrence: US)
  Receive Date: 20240828
  Receipt Date: 20240828
  Transmission Date: 20241016
  Serious: Yes (Other)
  Sender: NOVARTIS
  Company Number: US-002147023-NVSC2024US172399

PATIENT
  Age: 51 Year

DRUGS (2)
  1. ENTRESTO [Suspect]
     Active Substance: SACUBITRIL\VALSARTAN
     Indication: Product used for unknown indication
     Dosage: UNK
     Route: 065
  2. SPIRONOLACTONE [Suspect]
     Active Substance: SPIRONOLACTONE
     Indication: Product used for unknown indication
     Dosage: UNK (SWAB)
     Route: 065

REACTIONS (4)
  - Cardiomyopathy acute [Unknown]
  - Cardiac failure congestive [Unknown]
  - Ejection fraction abnormal [Unknown]
  - Bundle branch block left [Unknown]
